FAERS Safety Report 8143951-7 (Version None)
Quarter: 2012Q1

REPORT INFORMATION
  Report Type: 
  Country: None (occurrence: None)
  Receive Date: 20120217
  Receipt Date: 20120217
  Transmission Date: 20120608
  Serious: Yes (Hospitalization)
  Sender: FDA-Public Use
  Company Number: None

PATIENT
  Age: 68 Year
  Sex: Female
  Weight: 108.86 kg

DRUGS (2)
  1. RITUXAN [Suspect]
     Indication: RHEUMATOID ARTHRITIS
     Dosage: ACCORDING TO WEIGHT OF 240 LBS
     Dates: start: 20111013, end: 20111013
  2. TOFRANIL [Concomitant]

REACTIONS (6)
  - MANIA [None]
  - EUPHORIC MOOD [None]
  - INSOMNIA [None]
  - SPEECH DISORDER [None]
  - BLOOD PRESSURE SYSTOLIC INCREASED [None]
  - APHAGIA [None]
